FAERS Safety Report 6156698-3 (Version None)
Quarter: 2009Q2

REPORT INFORMATION
  Report Type: 
  Country: None (occurrence: None)
  Receive Date: 20090416
  Receipt Date: 20090409
  Transmission Date: 20091009
  Serious: Yes (Hospitalization, Other)
  Sender: FDA-Public Use
  Company Number: BR-ASTRAZENECA-2009UW09150

PATIENT
  Age: 54 Year
  Sex: Female
  Weight: 100 kg

DRUGS (11)
  1. CRESTOR [Suspect]
     Indication: HYPERCHOLESTEROLAEMIA
     Route: 048
     Dates: start: 20070101, end: 20090409
  2. VASOPRIL [Concomitant]
     Indication: HYPERTENSION
     Route: 048
  3. CLORANA [Concomitant]
     Indication: HYPERTENSION
     Route: 048
  4. AVANDIA [Concomitant]
     Indication: DIABETES MELLITUS
     Route: 048
  5. JANUVIA [Concomitant]
     Indication: DIABETES MELLITUS
     Route: 048
  6. DIAMICRON [Concomitant]
     Route: 048
  7. RIVOTRIL [Concomitant]
     Route: 048
  8. OMEPRAZOLE [Concomitant]
     Dosage: PRN
     Route: 048
  9. SOYFEM [Concomitant]
     Route: 048
     Dates: start: 20090401
  10. PLASIL [Concomitant]
     Dosage: PRN
     Route: 048
  11. DIPYRONE [Concomitant]

REACTIONS (4)
  - CONSTIPATION [None]
  - ENDOMETRIOSIS [None]
  - GAMMA-GLUTAMYLTRANSFERASE INCREASED [None]
  - UTERINE POLYP [None]
